FAERS Safety Report 4442167-5 (Version None)
Quarter: 2004Q3

REPORT INFORMATION
  Report Type: 
  Country: None (occurrence: None)
  Receive Date: 20040903
  Receipt Date: 20040722
  Transmission Date: 20050211
  Serious: Yes (Other)
  Sender: FDA-Public Use
  Company Number: 2004UW15543

PATIENT
  Age: 63 Year
  Sex: Female
  Weight: 72.5755 kg

DRUGS (4)
  1. CRESTOR [Suspect]
     Indication: BLOOD CHOLESTEROL INCREASED
     Dosage: 10 MG PO
     Route: 048
     Dates: end: 20040701
  2. NEXIUM [Concomitant]
  3. MULTI-VITAMINS [Concomitant]
  4. ASPIRIN [Concomitant]

REACTIONS (3)
  - CHEST WALL PAIN [None]
  - MYALGIA [None]
  - NASOPHARYNGITIS [None]
